FAERS Safety Report 5238654-2 (Version None)
Quarter: 2007Q1

REPORT INFORMATION
  Report Type: 
  Country: None (occurrence: None)
  Receive Date: 20070214
  Receipt Date: 20070214
  Transmission Date: 20070707
  Serious: Yes (Hospitalization)
  Sender: FDA-Public Use
  Company Number: None

PATIENT
  Age: 69 Year
  Sex: Male
  Weight: 77.5651 kg

DRUGS (7)
  1. ASPIRIN [Suspect]
     Indication: CORONARY ARTERY DISEASE
     Dosage: 81 MG DAILY
     Dates: start: 20041210, end: 20061101
  2. ASPIRIN [Suspect]
     Indication: DIABETES MELLITUS
     Dosage: 81 MG DAILY
     Dates: start: 20041210, end: 20061101
  3. ASPIRIN [Suspect]
     Indication: PAIN
     Dosage: 81 MG DAILY
     Dates: start: 20041210, end: 20061101
  4. NAPROXEN [Suspect]
     Indication: PAIN
     Dosage: 375 MG BID
     Dates: start: 20050817, end: 20061101
  5. NPH INSULIN [Suspect]
     Dosage: 17 UNITS BID INCREASED
     Dates: start: 20060310, end: 20061101
  6. METFORMIN 1000 MG BID [Suspect]
     Dosage: 1000 MG BID
     Dates: start: 20040630, end: 20060401
  7. GLYBURIDE [Suspect]
     Dosage: 10 MG BID

REACTIONS (2)
  - GASTROINTESTINAL HAEMORRHAGE [None]
  - HYPOGLYCAEMIA [None]
